FAERS Safety Report 8058224-0 (Version None)
Quarter: 2012Q1

REPORT INFORMATION
  Report Type: 
  Country: None (occurrence: None)
  Receive Date: 20120120
  Receipt Date: 20120112
  Transmission Date: 20120608
  Serious: Yes (Hospitalization, Other)
  Sender: FDA-Public Use
  Company Number: JP-TEVA-2011004805

PATIENT
  Sex: Female
  Weight: 52.8 kg

DRUGS (15)
  1. BENDAMUSTINE [Suspect]
     Dosage: 135 MILLIGRAM;
     Route: 042
     Dates: start: 20110829, end: 20110830
  2. LEVOFLOXACIN [Concomitant]
     Dates: start: 20110118, end: 20110118
  3. SENNA LEAF [Concomitant]
     Dates: end: 20110124
  4. BENFOTIAMINE [Concomitant]
     Indication: NEUROPATHY PERIPHERAL
     Dates: start: 20110711
  5. POVIDONE IODINE [Concomitant]
     Dates: end: 20110214
  6. GRANISETRON HCL [Concomitant]
  7. HEPARIN SODIUM [Concomitant]
  8. BENDAMUSTINE [Suspect]
     Indication: B-CELL LYMPHOMA
     Dosage: 135 MILLIGRAM;
     Route: 042
     Dates: start: 20110524, end: 20110525
  9. SULFAMETHOXAZOLE AND TRIMETHOPRIM [Concomitant]
     Dates: start: 20110111
  10. BROTIZOLAM [Concomitant]
  11. RITUXIMAB [Suspect]
     Dosage: 500 MILLIGRAM;
     Route: 042
     Dates: start: 20110826
  12. RITUXIMAB [Suspect]
     Indication: B-CELL LYMPHOMA
     Dosage: 500 MILLIGRAM;
     Route: 042
     Dates: start: 20110527
  13. TEPRENONE [Concomitant]
  14. ACETAMINOPHEN [Concomitant]
     Dates: end: 20110118
  15. MAGNESIUM OXIDE [Concomitant]
     Dosage: 990 MILLIGRAM;
     Dates: start: 20110606

REACTIONS (4)
  - ANGIOPATHY [None]
  - LYMPHOCYTE COUNT DECREASED [None]
  - NEUTROPHIL COUNT DECREASED [None]
  - WHITE BLOOD CELL COUNT DECREASED [None]
